FAERS Safety Report 8896389 (Version 2)
Quarter: 2013Q1

REPORT INFORMATION
  Report Type: Spontaneous
  Country: US (occurrence: None)
  Receive Date: 20121101
  Receipt Date: 20121226
  Transmission Date: 20140127
  Serious: Yes (Other)
  Sender: FDA-Public Use
  Company Number: 2012SA075876

PATIENT
  Age: 66 Year
  Sex: Male

DRUGS (1)
  1. ICY HOT [Suspect]
     Indication: BACK PAIN
     Route: 003
     Dates: start: 20121014, end: 20121014

REACTIONS (5)
  - Application site burn [None]
  - Application site scar [None]
  - Chemical burn of skin [None]
  - Blister [None]
  - Skin irritation [None]
